FAERS Safety Report 10426563 (Version 1)
Quarter: 2014Q3

REPORT INFORMATION
  Report Type: Spontaneous
  Country: US (occurrence: US)
  Receive Date: 20140903
  Receipt Date: 20140903
  Transmission Date: 20150326
  Serious: No
  Sender: FDA-Public Use
  Company Number: US-JNJFOC-20140821259

PATIENT
  Age: 41 Year
  Sex: Male
  Weight: 78.47 kg

DRUGS (1)
  1. DURAGESIC [Suspect]
     Active Substance: FENTANYL
     Indication: PAIN
     Dosage: ON AN UNSPECIFIED DATE IN APR OR MAY-2013
     Route: 062
     Dates: start: 2013

REACTIONS (15)
  - Wrong technique in drug usage process [Unknown]
  - Wrong technique in drug usage process [Unknown]
  - Irritability [Unknown]
  - Feeling abnormal [Unknown]
  - Product quality issue [Unknown]
  - Thinking abnormal [Unknown]
  - Muscle spasms [Unknown]
  - Product adhesion issue [Unknown]
  - Adverse drug reaction [Unknown]
  - Inadequate diet [Unknown]
  - Hyperhidrosis [Unknown]
  - Poor quality sleep [Unknown]
  - Pain [Unknown]
  - Middle insomnia [Unknown]
  - Malaise [Unknown]

NARRATIVE: CASE EVENT DATE: 2013
